FAERS Safety Report 25001513 (Version 5)
Quarter: 2025Q3

REPORT INFORMATION
  Report Type: Report from Study
  Country: US (occurrence: US)
  Receive Date: 20250223
  Receipt Date: 20250812
  Transmission Date: 20251020
  Serious: Yes (Other)
  Sender: ABBVIE
  Company Number: US-ABBVIE-6143621

PATIENT
  Age: 70 Year
  Sex: Male

DRUGS (12)
  1. VENCLEXTA [Suspect]
     Active Substance: VENETOCLAX
     Indication: Chronic lymphocytic leukaemia
     Dosage: FOUR 100 MG VENCLEXTA ONCE DAILY, MISSED COUPLE OF DOSES, LAST ADMIN DATE- 2024
     Route: 048
     Dates: start: 20240109
  2. VENCLEXTA [Suspect]
     Active Substance: VENETOCLAX
     Indication: Chronic lymphocytic leukaemia
     Dosage: FOUR 100 MG VENCLEXTA ONCE DAILY?MISSED DOSE ON 10 MAY 2025
     Route: 048
     Dates: start: 2025, end: 20250509
  3. VENCLEXTA [Suspect]
     Active Substance: VENETOCLAX
     Indication: Chronic lymphocytic leukaemia
     Dosage: FOUR 100 MG VENCLEXTA ONCE DAILY, MISSED COUPLE OF DOSES
     Route: 048
     Dates: start: 202412
  4. VENCLEXTA [Suspect]
     Active Substance: VENETOCLAX
     Indication: Chronic lymphocytic leukaemia
     Dosage: THREE100 MG VENCLEXTA ONCE DAILY
     Route: 048
     Dates: start: 20250109
  5. VITAMIN B6 [Concomitant]
     Active Substance: PYRIDOXINE HYDROCHLORIDE
     Indication: Neuropathy peripheral
  6. COENZYME Q10 [Concomitant]
     Active Substance: DIETARY SUPPLEMENT\UBIDECARENONE
     Indication: Neuropathy peripheral
  7. VITAMIN B12 [Concomitant]
     Active Substance: CYANOCOBALAMIN
     Indication: Neuropathy peripheral
  8. VITAMIN C [Concomitant]
     Active Substance: ASCORBIC ACID
     Indication: Neuropathy peripheral
  9. ZINC [Concomitant]
     Active Substance: ZINC
     Indication: Neuropathy peripheral
  10. MAGNESIUM GLUCONATE [Concomitant]
     Active Substance: MAGNESIUM GLUCONATE
     Indication: Neuropathy peripheral
  11. CAPSAICIN [Concomitant]
     Active Substance: CAPSAICIN
     Indication: Neuropathy peripheral
  12. CALCIUM\VITAMIN D [Concomitant]
     Active Substance: CALCIUM\VITAMIN D
     Indication: Neuropathy peripheral

REACTIONS (13)
  - Haemoglobin abnormal [Unknown]
  - Abdominal pain [Unknown]
  - Platelet count decreased [Unknown]
  - Fatigue [Not Recovered/Not Resolved]
  - Bronchitis [Recovering/Resolving]
  - Neuropathy peripheral [Not Recovered/Not Resolved]
  - Asthenia [Unknown]
  - Burning sensation [Not Recovered/Not Resolved]
  - Nasopharyngitis [Recovering/Resolving]
  - Cough [Recovering/Resolving]
  - Myalgia [Unknown]
  - Pain in extremity [Unknown]
  - Diarrhoea [Unknown]

NARRATIVE: CASE EVENT DATE: 20241201
